FAERS Safety Report 8462991-1 (Version None)
Quarter: 2012Q2

REPORT INFORMATION
  Report Type: 
  Country: None (occurrence: None)
  Receive Date: 20120625
  Receipt Date: 20120620
  Transmission Date: 20120825
  Serious: Yes (Other)
  Sender: FDA-Public Use
  Company Number: ZA-GLAXOSMITHKLINE-B0785119A

PATIENT
  Age: 84 Year
  Sex: Female

DRUGS (4)
  1. SEREVENT [Suspect]
     Indication: PRODUCT USED FOR UNKNOWN INDICATION
     Route: 055
  2. LEVOTHYROXINE SODIUM [Concomitant]
  3. AMLODIPINE BESYLATE [Concomitant]
  4. PURBAC [Concomitant]

REACTIONS (2)
  - APHASIA [None]
  - PRODUCT QUALITY ISSUE [None]
